FAERS Safety Report 19390039 (Version 1)
Quarter: 2021Q2

REPORT INFORMATION
  Report Type: Report from Study
  Country: NL (occurrence: NL)
  Receive Date: 20210608
  Receipt Date: 20210608
  Transmission Date: 20210717
  Serious: Yes (Other)
  Sender: FDA-Public Use
  Company Number: NL-VER-202100103

PATIENT
  Sex: Male

DRUGS (1)
  1. TRIPTORELIN PAMOATE [Suspect]
     Active Substance: TRIPTORELIN PAMOATE
     Indication: PRODUCT USED FOR UNKNOWN INDICATION
     Dosage: ONE PER 24 WEEKS FREQUENCY
     Route: 030
     Dates: start: 2013

REACTIONS (2)
  - Metastases to bone [Recovering/Resolving]
  - Prostatic specific antigen increased [Not Recovered/Not Resolved]
